FAERS Safety Report 9288287 (Version 1)
Quarter: 2013Q2

REPORT INFORMATION
  Report Type: Spontaneous
  Country: US (occurrence: US)
  Receive Date: 20130514
  Receipt Date: 20130514
  Transmission Date: 20140414
  Serious: Yes (Other)
  Sender: FDA-Public Use
  Company Number: US-BAYER-2013-059083

PATIENT
  Age: 41 Year
  Sex: Female

DRUGS (1)
  1. MAGNEVIST [Suspect]
     Indication: NUCLEAR MAGNETIC RESONANCE IMAGING BRAIN
     Dosage: 18 ML, ONCE
     Dates: start: 20130510, end: 20130510

REACTIONS (3)
  - Injection site pain [None]
  - Local swelling [None]
  - Pain in extremity [None]
